FAERS Safety Report 12134550 (Version 1)
Quarter: 2016Q1

REPORT INFORMATION
  Report Type: Spontaneous
  Country: US (occurrence: US)
  Receive Date: 20160301
  Receipt Date: 20160301
  Transmission Date: 20160526
  Serious: Yes (Other)
  Sender: FDA-Public Use
  Company Number: US-NORTHSTAR HEALTHCARE HOLDINGS-US-2016NSR001004

PATIENT

DRUGS (3)
  1. BACLOFEN. [Suspect]
     Active Substance: BACLOFEN
     Indication: MUSCULOSKELETAL PAIN
     Dosage: UNK UNK, TID
     Route: 048
     Dates: start: 201506
  2. BACLOFEN. [Suspect]
     Active Substance: BACLOFEN
     Indication: BACK PAIN
     Dosage: 20 MG, TID
     Route: 048
  3. BACLOFEN. [Suspect]
     Active Substance: BACLOFEN
     Indication: NECK PAIN
     Dosage: 10 MG, PRN
     Route: 048
     Dates: start: 201503, end: 201506

REACTIONS (6)
  - Confusional state [Not Recovered/Not Resolved]
  - Weight increased [Not Recovered/Not Resolved]
  - Fatigue [Not Recovered/Not Resolved]
  - Urinary retention [Not Recovered/Not Resolved]
  - Memory impairment [Not Recovered/Not Resolved]
  - Off label use [Not Recovered/Not Resolved]

NARRATIVE: CASE EVENT DATE: 201503
